FAERS Safety Report 9869093 (Version 2)
Quarter: 2014Q1

REPORT INFORMATION
  Report Type: Report from Study
  Country: RS (occurrence: RS)
  Receive Date: 20140205
  Receipt Date: 20140205
  Transmission Date: 20141002
  Serious: Yes (Other)
  Sender: FDA-Public Use
  Company Number: RS-ROCHE-1309187

PATIENT
  Age: 50 Year
  Sex: Female
  Weight: 74 kg

DRUGS (12)
  1. TOCILIZUMAB [Suspect]
     Indication: RHEUMATOID ARTHRITIS
     Route: 042
     Dates: start: 20130718, end: 20130814
  2. TOCILIZUMAB [Suspect]
     Dosage: DOSE REDUCED
     Route: 042
     Dates: start: 20130815, end: 20130926
  3. TOCILIZUMAB [Suspect]
     Route: 042
     Dates: start: 20130926
  4. TOCILIZUMAB [Suspect]
     Route: 042
     Dates: start: 20130815, end: 20131104
  5. TOCILIZUMAB [Suspect]
     Route: 042
     Dates: start: 20131105, end: 20131204
  6. TOCILIZUMAB [Suspect]
     Route: 042
     Dates: start: 20131205, end: 20140127
  7. TOCILIZUMAB [Suspect]
     Route: 042
     Dates: start: 20140128
  8. METHOTREXAT [Concomitant]
     Indication: RHEUMATOID ARTHRITIS
     Route: 065
  9. METHYLPREDNISOLON [Concomitant]
     Indication: RHEUMATOID ARTHRITIS
     Route: 065
  10. DICLOFEN [Concomitant]
     Route: 048
  11. LETROX [Concomitant]
     Indication: HYPERTHYROIDISM
     Route: 048
  12. PRONISON [Concomitant]
     Route: 048

REACTIONS (3)
  - Neutrophil count decreased [Unknown]
  - Oropharyngeal pain [Recovered/Resolved]
  - Tonsillitis [Recovered/Resolved]
